FAERS Safety Report 10070481 (Version 2)
Quarter: 2014Q2

REPORT INFORMATION
  Report Type: Spontaneous
  Country: US (occurrence: US)
  Receive Date: 20140410
  Receipt Date: 20140515
  Transmission Date: 20141212
  Serious: Yes (Death, Life-Threatening, Disabling, Other)
  Sender: FDA-Public Use
  Company Number: US-009507513-1404USA005434

PATIENT
  Sex: Female
  Weight: 72.56 kg

DRUGS (2)
  1. JANUVIA [Suspect]
     Indication: TYPE 2 DIABETES MELLITUS
     Dosage: 100 MG, QD
     Route: 048
     Dates: start: 20070712, end: 20120705
  2. METFORMIN [Concomitant]
     Indication: TYPE 2 DIABETES MELLITUS
     Dosage: QD-BID

REACTIONS (17)
  - Pancreatic carcinoma [Fatal]
  - Acute respiratory failure [Fatal]
  - Cholecystectomy [Unknown]
  - Metastases to liver [Unknown]
  - Metastases to bone [Unknown]
  - Hypertension [Unknown]
  - Neuropathy peripheral [Unknown]
  - Cholecystitis acute [Unknown]
  - Ascites [Unknown]
  - Alopecia [Unknown]
  - Blood glucose increased [Unknown]
  - Skin turgor decreased [Unknown]
  - Insomnia [Unknown]
  - Restless legs syndrome [Unknown]
  - Depression [Unknown]
  - Vomiting [Unknown]
  - Nausea [Unknown]
